FAERS Safety Report 6222108-0 (Version None)
Quarter: 2009Q2

REPORT INFORMATION
  Report Type: 
  Country: None (occurrence: None)
  Receive Date: 20090611
  Receipt Date: 20090605
  Transmission Date: 20091009
  Serious: Yes (Death)
  Sender: FDA-Public Use
  Company Number: JP-ASTRAZENECA-2009SE02155

PATIENT
  Age: 79 Year
  Sex: Male

DRUGS (7)
  1. MEROPEN [Suspect]
     Indication: PNEUMONIA
     Route: 042
     Dates: start: 20090515, end: 20090525
  2. TAKEPRON [Concomitant]
     Indication: GASTRIC ULCER
     Route: 048
  3. URDESTON [Concomitant]
     Indication: HEPATITIS
     Route: 048
  4. GRAMALIL [Concomitant]
     Indication: ANXIETY DISORDER
     Route: 048
  5. MAGMITT [Concomitant]
     Indication: CONSTIPATION
     Route: 048
  6. CRAVIT [Concomitant]
     Dates: start: 20090511
  7. ETHAMBUTOL HCL [Concomitant]
     Dates: start: 20090511

REACTIONS (1)
  - HAEMOLYTIC ANAEMIA [None]
